FAERS Safety Report 4774146-2 (Version None)
Quarter: 2005Q3

REPORT INFORMATION
  Report Type: 
  Country: None (occurrence: None)
  Receive Date: 20050914
  Receipt Date: 20050401
  Transmission Date: 20060218
  Serious: Yes (Other)
  Sender: FDA-Public Use
  Company Number: 163-20785-05040179

PATIENT
  Sex: Female

DRUGS (1)
  1. THALOMID [Suspect]
     Indication: UTERINE LEIOMYOSARCOMA
     Dosage: 200MG QHS INCREASED BY 200MG Q2WKS TO MAXIMUM OF 1000MG/DAY, QHS, ORAL
     Route: 048
     Dates: start: 20020624

REACTIONS (1)
  - DYSPNOEA [None]
